FAERS Safety Report 7511376-0 (Version None)
Quarter: 2011Q2

REPORT INFORMATION
  Report Type: 
  Country: None (occurrence: None)
  Receive Date: 20110531
  Receipt Date: 20110516
  Transmission Date: 20111010
  Serious: Yes (Death, Hospitalization, Other)
  Sender: FDA-Public Use
  Company Number: ES-JNJFOC-20110410711

PATIENT
  Sex: Male
  Weight: 80 kg

DRUGS (12)
  1. DULOXETINE HYDROCHLORIDE [Concomitant]
     Indication: PAIN
     Route: 048
     Dates: start: 20100101
  2. GELOCATIL [Concomitant]
     Indication: PAIN
     Route: 048
     Dates: start: 20030101
  3. DURAGESIC-100 [Suspect]
     Route: 062
     Dates: start: 20030101
  4. FENTANYL [Suspect]
     Indication: MUSCULOSKELETAL PAIN
     Route: 002
  5. COROPRES [Concomitant]
     Indication: CARDIAC FAILURE
     Route: 048
     Dates: start: 20090101
  6. FUROSEMIDE [Concomitant]
     Indication: CARDIAC FAILURE
     Route: 048
     Dates: start: 20090101
  7. GABAPENTINE [Concomitant]
     Indication: PAIN
     Route: 065
     Dates: start: 20100101
  8. DURAGESIC-100 [Suspect]
     Indication: MUSCULOSKELETAL PAIN
     Route: 062
  9. BOI-K [Concomitant]
     Indication: CARDIAC FAILURE
     Route: 065
     Dates: start: 20090101
  10. DULOXETINE HYDROCHLORIDE [Concomitant]
     Indication: DEPRESSION
     Route: 048
     Dates: start: 20100101
  11. HYDRALAZINE HCL [Concomitant]
     Indication: CARDIAC FAILURE
     Route: 048
     Dates: start: 20090101
  12. NITROGLYCERIN [Concomitant]
     Indication: MYOCARDIAL ISCHAEMIA
     Route: 065
     Dates: start: 20090101

REACTIONS (3)
  - RESPIRATORY FAILURE [None]
  - DRUG DEPENDENCE [None]
  - PAIN [None]
